FAERS Safety Report 13691249 (Version 1)
Quarter: 2017Q2

REPORT INFORMATION
  Report Type: Spontaneous
  Country: US (occurrence: US)
  Receive Date: 20170626
  Receipt Date: 20170626
  Transmission Date: 20170830
  Serious: No
  Sender: FDA-Public Use
  Company Number: US-ROCHE-706832

PATIENT
  Sex: Female

DRUGS (2)
  1. VALTREX [Concomitant]
     Active Substance: VALACYCLOVIR HYDROCHLORIDE
     Route: 065
  2. CELLCEPT [Suspect]
     Active Substance: MYCOPHENOLATE MOFETIL\MYCOPHENOLATE MOFETIL HYDROCHLORIDE
     Indication: FIBROSIS
     Route: 048
     Dates: start: 20100520, end: 20100521

REACTIONS (4)
  - Genital herpes [Not Recovered/Not Resolved]
  - Heart rate irregular [Unknown]
  - Vulvovaginal burning sensation [Not Recovered/Not Resolved]
  - Chest discomfort [Unknown]
